FAERS Safety Report 5055495-X (Version None)
Quarter: 2006Q3

REPORT INFORMATION
  Report Type: 
  Country: None (occurrence: None)
  Receive Date: 20060717
  Receipt Date: 20060717
  Transmission Date: 20061208
  Serious: Yes (Life-Threatening, Hospitalization)
  Sender: FDA-Public Use
  Company Number: None

PATIENT
  Age: 68 Year
  Sex: Female
  Weight: 74.3899 kg

DRUGS (6)
  1. MEPERIDINE HCL [Suspect]
     Indication: PROCEDURAL PAIN
     Dosage: 75 MGIV Q3H PRN
     Route: 042
     Dates: start: 20060227
  2. ZESTRIL [Concomitant]
  3. LEVAQUIN [Concomitant]
  4. TORADOL [Concomitant]
  5. ZOFRAN [Concomitant]
  6. DILAUDID [Concomitant]

REACTIONS (1)
  - CARDIO-RESPIRATORY ARREST [None]
